FAERS Safety Report 8986586 (Version 1)
Quarter: 2012Q4

REPORT INFORMATION
  Report Type: 
  Country: US (occurrence: US)
  Receive Date: 20121226
  Receipt Date: 20121226
  Transmission Date: 20130627
  Serious: Yes (Hospitalization)
  Sender: FDA-Public Use
  Company Number: US-MYLANLABS-2012S1025893

PATIENT
  Age: 9 Year
  Sex: Female

DRUGS (4)
  1. TACROLIMUS [Suspect]
     Indication: IMMUNOSUPPRESSANT DRUG THERAPY
     Route: 065
  2. SIROLIMUS [Suspect]
     Indication: IMMUNOSUPPRESSANT DRUG THERAPY
     Dosage: 3mg daily
     Route: 065
  3. AZITHROMYCIN [Suspect]
     Indication: CAT SCRATCH DISEASE
     Dosage: 10mg/kg for 1 dose, then 5 mg/kg daily
     Route: 065
  4. AZITHROMYCIN [Suspect]
     Indication: CAT SCRATCH DISEASE
     Dosage: 5 mg/kg daily
     Route: 065

REACTIONS (5)
  - Cat scratch disease [Recovered/Resolved]
  - Microcytic anaemia [Recovered/Resolved]
  - Lymphopenia [Recovered/Resolved]
  - Thrombocytopenia [Recovered/Resolved]
  - Jarisch-Herxheimer reaction [Recovering/Resolving]
